FAERS Safety Report 5485610-5 (Version None)
Quarter: 2007Q4

REPORT INFORMATION
  Report Type: 
  Country: None (occurrence: None)
  Receive Date: 20071011
  Receipt Date: 20071011
  Transmission Date: 20080405
  Serious: Yes (Other)
  Sender: FDA-Public Use
  Company Number: None

PATIENT
  Age: 23 Year
  Sex: Female
  Weight: 61.2356 kg

DRUGS (2)
  1. FLUORESCEIN [Suspect]
     Indication: OPHTHALMOLOGICAL EXAMINATION
     Dosage: EYE DROP ONCE OPHTHALMIC
     Route: 047
     Dates: start: 20071008, end: 20071008
  2. PROPARACAINE HCL [Suspect]
     Indication: OPHTHALMOLOGICAL EXAMINATION
     Dosage: EYE DROP ONCE OPHTHALMIC
     Route: 047
     Dates: start: 20071008, end: 20071008

REACTIONS (19)
  - CHILLS [None]
  - COLD SWEAT [None]
  - CONFUSIONAL STATE [None]
  - DRY MOUTH [None]
  - FATIGUE [None]
  - FEELING ABNORMAL [None]
  - FEELING COLD [None]
  - HEADACHE [None]
  - HYPERHIDROSIS [None]
  - ILL-DEFINED DISORDER [None]
  - LOSS OF CONSCIOUSNESS [None]
  - MEMORY IMPAIRMENT [None]
  - MUSCLE RIGIDITY [None]
  - NAUSEA [None]
  - NO THERAPEUTIC RESPONSE [None]
  - PALLOR [None]
  - PHOTOPHOBIA [None]
  - SENSATION OF HEAVINESS [None]
  - VOMITING [None]
